FAERS Safety Report 5361903-7 (Version None)
Quarter: 2007Q2

REPORT INFORMATION
  Report Type: 
  Country: None (occurrence: None)
  Receive Date: 20070619
  Receipt Date: 20070607
  Transmission Date: 20071010
  Serious: Yes (Hospitalization)
  Sender: FDA-Public Use
  Company Number: ES-AMGEN-US213568

PATIENT
  Age: 32 Year
  Sex: Female

DRUGS (3)
  1. ENBREL [Suspect]
     Indication: PSORIATIC ARTHROPATHY
     Route: 058
     Dates: start: 20040101, end: 20061219
  2. NEOBRUFEN [Concomitant]
     Dosage: UNKNOWN
     Dates: end: 20061219
  3. METHYLPREDNISOLONE [Concomitant]
     Dosage: 2 MG EVERY OTHER DAY
     Dates: end: 20061219

REACTIONS (3)
  - DEHYDRATION [None]
  - DRUG EXPOSURE DURING PREGNANCY [None]
  - VOMITING [None]
